FAERS Safety Report 7423733-1 (Version None)
Quarter: 2011Q2

REPORT INFORMATION
  Report Type: 
  Country: None (occurrence: None)
  Receive Date: 20110419
  Receipt Date: 20110415
  Transmission Date: 20111010
  Serious: Yes (Other)
  Sender: FDA-Public Use
  Company Number: A0923109A

PATIENT
  Age: 78 Year
  Sex: Female

DRUGS (1)
  1. ALLI [Suspect]
     Indication: WEIGHT LOSS DIET
     Route: 048
     Dates: start: 20090101, end: 20100101

REACTIONS (7)
  - CHEST PAIN [None]
  - CONSTIPATION [None]
  - CEREBRAL HYPOPERFUSION [None]
  - CONDITION AGGRAVATED [None]
  - CHOLELITHIASIS [None]
  - MENTAL IMPAIRMENT [None]
  - GASTROOESOPHAGEAL REFLUX DISEASE [None]
